FAERS Safety Report 15006633 (Version 1)
Quarter: 2018Q2

REPORT INFORMATION
  Report Type: Spontaneous
  Country: US (occurrence: US)
  Receive Date: 20180526
  Receipt Date: 20180526
  Transmission Date: 20180711
  Serious: Yes (Life-Threatening, Other)
  Sender: FDA-Public Use
  Company Number: None

PATIENT
  Age: 5 Year
  Sex: Male
  Weight: 18.9 kg

DRUGS (4)
  1. JUICEPLUS VITAMINS [Concomitant]
  2. FLOVENT [Concomitant]
     Active Substance: FLUTICASONE PROPIONATE
  3. MONTELUKAST SOD: GENERIC FOR SINGULAIR 4 MG [Suspect]
     Active Substance: MONTELUKAST SODIUM
     Indication: ASTHMA
     Dosage: ?          QUANTITY:1 DF DOSAGE FORM;?
     Route: 048
     Dates: start: 20170307, end: 20170323
  4. ALBUTEROL. [Concomitant]
     Active Substance: ALBUTEROL

REACTIONS (6)
  - Anger [None]
  - Self esteem decreased [None]
  - Emotional disorder [None]
  - Depression [None]
  - Sleep terror [None]
  - Suicidal ideation [None]

NARRATIVE: CASE EVENT DATE: 20170310
